FAERS Safety Report 4726451-3 (Version None)
Quarter: 2005Q3

REPORT INFORMATION
  Report Type: 
  Country: None (occurrence: None)
  Receive Date: 20050725
  Receipt Date: 20050510
  Transmission Date: 20060218
  Serious: No
  Sender: FDA-Public Use
  Company Number: USA050597726

PATIENT
  Age: 54 Year
  Sex: Female

DRUGS (4)
  1. STRATTERA [Suspect]
     Indication: ATTENTION DEFICIT/HYPERACTIVITY DISORDER
     Dosage: 40 MG DAY
  2. ZOLOFT [Concomitant]
  3. TRAZODONE HCL [Concomitant]
  4. XANAX [Concomitant]

REACTIONS (1)
  - DRUG SCREEN POSITIVE [None]
